FAERS Safety Report 8575005-X (Version None)
Quarter: 2012Q3

REPORT INFORMATION
  Report Type: 
  Country: None (occurrence: None)
  Receive Date: 20120807
  Receipt Date: 20120729
  Transmission Date: 20120928
  Serious: Yes (Hospitalization)
  Sender: FDA-Public Use
  Company Number: US-VERTEX PHARMACEUTICALS INC.-AE-2012-011008

PATIENT
  Sex: Male
  Weight: 90.8 kg

DRUGS (4)
  1. RIBASPHERE [Concomitant]
     Indication: CHRONIC HEPATITIS
     Route: 048
     Dates: start: 20120518
  2. INCIVEK [Suspect]
     Indication: HEPATITIS C
     Route: 048
     Dates: start: 20120518, end: 20120715
  3. PEG-INTRON [Concomitant]
     Indication: HEPATITIS C
     Route: 058
     Dates: start: 20120518
  4. ZOFRAN [Concomitant]
     Indication: NAUSEA
     Dates: start: 20120709

REACTIONS (6)
  - RENAL IMPAIRMENT [None]
  - NAUSEA [None]
  - HAEMORRHAGE [None]
  - VOMITING [None]
  - DIZZINESS [None]
  - DYSURIA [None]
